FAERS Safety Report 17246478 (Version 1)
Quarter: 2019Q4

REPORT INFORMATION
  Report Type: Spontaneous
  Country: US (occurrence: US)
  Receive Date: 20191213
  Receipt Date: 20191213
  Transmission Date: 20200122
  Serious: No
  Sender: FDA-Public Use
  Company Number: None

PATIENT
  Age: 51 Year
  Sex: Female

DRUGS (2)
  1. CAPECITABINE 150MG NOVADOZ PHARMACEUTICALS [Suspect]
     Active Substance: CAPECITABINE
     Indication: SQUAMOUS CELL CARCINOMA OF SKIN
     Dosage: ?          OTHER FREQUENCY:SEE EVENT;?
     Route: 048
     Dates: start: 20190729, end: 20191011
  2. CAPECITABINE 500MG [Suspect]
     Active Substance: CAPECITABINE
     Indication: SQUAMOUS CELL CARCINOMA OF SKIN
     Dosage: ?          OTHER FREQUENCY:SEE EVENT ;?
     Route: 048
     Dates: start: 20190729, end: 20191011

REACTIONS (1)
  - Nausea [None]

NARRATIVE: CASE EVENT DATE: 20190729
